FAERS Safety Report 10148882 (Version 3)
Quarter: 2014Q3

REPORT INFORMATION
  Report Type: Spontaneous
  Country: IT (occurrence: IT)
  Receive Date: 20140502
  Receipt Date: 20140801
  Transmission Date: 20150326
  Serious: Yes (Hospitalization)
  Sender: FDA-Public Use
  Company Number: IT-BIOGENIDEC-2014BI041312

PATIENT
  Age: 42 Year
  Sex: Female

DRUGS (8)
  1. TERAZOSIN HCL [Concomitant]
     Active Substance: TERAZOSIN HYDROCHLORIDE
  2. TYSABRI [Suspect]
     Active Substance: NATALIZUMAB
     Indication: MULTIPLE SCLEROSIS
     Route: 042
     Dates: start: 20111130
  3. ENTACT [Concomitant]
     Active Substance: ESCITALOPRAM OXALATE
  4. GINODEN [Concomitant]
  5. VITAMIN B12 [Concomitant]
     Active Substance: CYANOCOBALAMIN
  6. IRON [Concomitant]
     Active Substance: IRON
  7. EUTIROX [Concomitant]
     Active Substance: LEVOTHYROXINE SODIUM
  8. FOLATE [Concomitant]
     Active Substance: FOLATE SODIUM

REACTIONS (1)
  - Impetigo [Recovered/Resolved]

NARRATIVE: CASE EVENT DATE: 20140402
